FAERS Safety Report 9844719 (Version 1)
Quarter: 2014Q1

REPORT INFORMATION
  Report Type: Spontaneous
  Country: FR (occurrence: None)
  Receive Date: 20140122
  Receipt Date: 20140122
  Transmission Date: 20141002
  Serious: Yes (Other)
  Sender: FDA-Public Use
  Company Number: 7260901

PATIENT
  Age: 95 Year
  Sex: Female

DRUGS (7)
  1. LEVOTHYROX [Suspect]
     Route: 048
  2. ALTEIS [Suspect]
     Route: 048
  3. FUROSEMIDE [Suspect]
     Route: 048
  4. SEROPLEX (ESCITALOPRAM OXALATE) (ESCITALOPRAM OXALATE) [Suspect]
     Route: 048
  5. NEBIVOLOL [Suspect]
     Route: 048
  6. ZOPICLONE [Suspect]
     Route: 048
  7. DIFFU K [Suspect]
     Route: 048

REACTIONS (1)
  - Thrombocytopenia [None]
